FAERS Safety Report 5932310-0 (Version None)
Quarter: 2008Q4

REPORT INFORMATION
  Report Type: 
  Country: None (occurrence: None)
  Receive Date: 20081023
  Receipt Date: 20081016
  Transmission Date: 20090506
  Serious: Yes (Death)
  Sender: FDA-Public Use
  Company Number: 2008-185468-NL

PATIENT
  Age: 49 Year
  Sex: Female

DRUGS (8)
  1. MIRTAZAPINE [Suspect]
     Dosage: ORAL
     Route: 048
  2. ACETAMINOPHEN W/ PROPOXYPHENE HCL [Suspect]
     Dosage: ORAL
     Route: 048
  3. DIAZEPAM [Suspect]
     Dosage: ORAL
     Route: 048
  4. ZYPREXA [Suspect]
     Dosage: ORAL
     Route: 048
  5. VENLAFAXINE HCL [Suspect]
     Dosage: ORAL
     Route: 048
  6. CODEINE SUL TAB [Suspect]
     Dosage: ORAL
     Route: 048
  7. GABAPENTIN [Suspect]
     Dosage: ORAL
     Route: 048
  8. METOPROLOL TARTRATE [Suspect]
     Dosage: ORAL
     Route: 048

REACTIONS (1)
  - DRUG ABUSE [None]
